FAERS Safety Report 15105609 (Version 3)
Quarter: 2018Q4

REPORT INFORMATION
  Report Type: Report from Study
  Country: CA (occurrence: CA)
  Receive Date: 20180704
  Receipt Date: 20181121
  Transmission Date: 20190204
  Serious: Yes (Hospitalization, Other)
  Sender: FDA-Public Use
  Company Number: CA-JNJFOC-20180616939

PATIENT
  Age: 52 Year
  Sex: Male

DRUGS (4)
  1. STELARA [Suspect]
     Active Substance: USTEKINUMAB
     Indication: CROHN^S DISEASE
     Dosage: STRENGTH = 90 MG
     Route: 058
     Dates: start: 20170518
  2. LOMOTIL [Concomitant]
     Active Substance: ATROPINE SULFATE\DIPHENOXYLATE HYDROCHLORIDE
     Route: 065
  3. LOPERAMIDE [Concomitant]
     Active Substance: LOPERAMIDE
     Route: 065
  4. CODEINE [Concomitant]
     Active Substance: CODEINE
     Route: 065

REACTIONS (10)
  - Off label use [Unknown]
  - Abscess [Recovering/Resolving]
  - Diarrhoea [Unknown]
  - Weight decreased [Recovering/Resolving]
  - Intestinal perforation [Unknown]
  - Asthenia [Not Recovered/Not Resolved]
  - Intestinal fistula [Unknown]
  - Gastrointestinal stoma complication [Unknown]
  - Impaired healing [Unknown]
  - Product use issue [Unknown]

NARRATIVE: CASE EVENT DATE: 20170518
